FAERS Safety Report 14899092 (Version 1)
Quarter: 2018Q2

REPORT INFORMATION
  Report Type: Spontaneous
  Country: US (occurrence: US)
  Receive Date: 20180516
  Receipt Date: 20180516
  Transmission Date: 20180711
  Serious: No
  Sender: FDA-Public Use
  Company Number: US-ENDO PHARMACEUTICALS INC-2018-035367

PATIENT
  Sex: Female

DRUGS (5)
  1. TIZANIDINE. [Suspect]
     Active Substance: TIZANIDINE
     Indication: MUSCLE SPASMS
  2. TRAMADOL. [Concomitant]
     Active Substance: TRAMADOL
     Indication: PRODUCT USED FOR UNKNOWN INDICATION
     Dosage: UNKNOWN, UNKNOWN
     Route: 065
  3. LORAZEPAM. [Concomitant]
     Active Substance: LORAZEPAM
     Indication: PRODUCT USED FOR UNKNOWN INDICATION
     Dosage: UNKNOWN, UNKNOWN
     Route: 065
  4. LISINOPRIL. [Concomitant]
     Active Substance: LISINOPRIL
     Indication: PRODUCT USED FOR UNKNOWN INDICATION
     Dosage: UNKNOWN, UNKNOWN
     Route: 065
  5. TIZANIDINE. [Suspect]
     Active Substance: TIZANIDINE
     Indication: MYALGIA
     Dosage: 4 MG
     Route: 048
     Dates: start: 20180411, end: 20180411

REACTIONS (19)
  - Abdominal pain upper [Unknown]
  - Chills [Unknown]
  - Swelling face [Unknown]
  - Visual impairment [Unknown]
  - Dizziness [Unknown]
  - Gait disturbance [Unknown]
  - Influenza like illness [Unknown]
  - Alopecia [Unknown]
  - Dry mouth [Unknown]
  - Back pain [Unknown]
  - Hyperhidrosis [Unknown]
  - Eye swelling [Unknown]
  - Heart rate decreased [Unknown]
  - Neck pain [Unknown]
  - Vomiting [Unknown]
  - Migraine [Unknown]
  - Slow speech [Unknown]
  - Confusional state [Unknown]
  - Pyrexia [Unknown]

NARRATIVE: CASE EVENT DATE: 20180411
